FAERS Safety Report 15552002 (Version 1)
Quarter: 2018Q4

REPORT INFORMATION
  Report Type: Spontaneous
  Country: CA (occurrence: CA)
  Receive Date: 20181025
  Receipt Date: 20181025
  Transmission Date: 20190205
  Serious: Yes (Other)
  Sender: FDA-Public Use
  Company Number: CA-ALKEM LABORATORIES LIMITED-CA-ALKEM-2018-03811

PATIENT
  Age: 70 Year
  Sex: Male

DRUGS (1)
  1. LINEZOLID. [Suspect]
     Active Substance: LINEZOLID
     Indication: STAPHYLOCOCCAL INFECTION
     Dosage: UNK
     Route: 065

REACTIONS (7)
  - Blood iron increased [Unknown]
  - Transferrin saturation increased [Unknown]
  - Platelet count decreased [Unknown]
  - Aplasia pure red cell [Recovered/Resolved]
  - Bone marrow toxicity [Unknown]
  - Haemoglobin decreased [Unknown]
  - Reticulocyte count decreased [Unknown]
